FAERS Safety Report 5512916-3 (Version None)
Quarter: 2007Q4

REPORT INFORMATION
  Report Type: 
  Country: None (occurrence: None)
  Receive Date: 20071112
  Receipt Date: 20071031
  Transmission Date: 20080405
  Serious: Yes (Hospitalization)
  Sender: FDA-Public Use
  Company Number: B0494732A

PATIENT
  Age: 67 Year
  Sex: Male

DRUGS (6)
  1. ZOFRAN [Suspect]
     Dosage: 8MG PER DAY
     Route: 042
     Dates: start: 20070711, end: 20070715
  2. TAXOTERE [Suspect]
     Indication: LARYNGEAL CANCER
     Dosage: 175MG PER DAY
     Route: 042
     Dates: start: 20070711
  3. CISPLATIN [Suspect]
     Indication: LARYNGEAL CANCER
     Dosage: 175MG PER DAY
     Route: 042
     Dates: start: 20070711
  4. FLUOROURACIL [Suspect]
     Indication: LARYNGEAL CANCER
     Dosage: 8740MG PER DAY
     Route: 042
     Dates: start: 20070711, end: 20070716
  5. SOLU-MEDROL [Suspect]
     Indication: LARYNGEAL CANCER
     Dosage: 60MG PER DAY
     Route: 042
     Dates: start: 20070711, end: 20070715
  6. PLITICAN [Suspect]
     Indication: LARYNGEAL CANCER
     Dosage: 100MG PER DAY
     Route: 042
     Dates: start: 20070711

REACTIONS (3)
  - DIARRHOEA [None]
  - FEBRILE BONE MARROW APLASIA [None]
  - RADIATION MUCOSITIS [None]
